FAERS Safety Report 6579817-3 (Version None)
Quarter: 2010Q1

REPORT INFORMATION
  Report Type: 
  Country: None (occurrence: None)
  Receive Date: 20100212
  Receipt Date: 20100209
  Transmission Date: 20100710
  Serious: Yes (Hospitalization)
  Sender: FDA-Public Use
  Company Number: FR-ROCHE-684575

PATIENT
  Age: 40 Year
  Sex: Male

DRUGS (1)
  1. CELLCEPT [Suspect]
     Route: 065
     Dates: end: 20100115

REACTIONS (1)
  - CEREBROVASCULAR ACCIDENT [None]
